FAERS Safety Report 8033113-6 (Version None)
Quarter: 2012Q1

REPORT INFORMATION
  Report Type: 
  Country: None (occurrence: None)
  Receive Date: 20120110
  Receipt Date: 20120110
  Transmission Date: 20120608
  Serious: Yes (Other)
  Sender: FDA-Public Use
  Company Number: None

PATIENT
  Age: 40 Year
  Sex: Female
  Weight: 72.574 kg

DRUGS (1)
  1. LUPRON DEPOT [Suspect]
     Indication: ENDOMETRIOSIS
     Dosage: INJECTION
     Dates: start: 20110926, end: 20111204

REACTIONS (15)
  - INSOMNIA [None]
  - HOT FLUSH [None]
  - PARAESTHESIA [None]
  - MOOD SWINGS [None]
  - JOINT DISLOCATION [None]
  - PALPITATIONS [None]
  - DEPRESSION [None]
  - ANXIETY [None]
  - AMNESIA [None]
  - HEADACHE [None]
  - COMMUNICATION DISORDER [None]
  - NAUSEA [None]
  - ARTHRALGIA [None]
  - NERVOUSNESS [None]
  - DIABETES MELLITUS INADEQUATE CONTROL [None]
